FAERS Safety Report 18900010 (Version 3)
Quarter: 2021Q2

REPORT INFORMATION
  Report Type: Spontaneous
  Country: US (occurrence: US)
  Receive Date: 20210216
  Receipt Date: 20210526
  Transmission Date: 20210717
  Serious: Yes (Other)
  Sender: FDA-Public Use
  Company Number: US-ROCHE-2769415

PATIENT
  Sex: Female

DRUGS (10)
  1. TAXOTERE [Concomitant]
     Active Substance: DOCETAXEL
  2. ERIBULIN [Concomitant]
     Active Substance: ERIBULIN
  3. CYTOXAN [Concomitant]
     Active Substance: CYCLOPHOSPHAMIDE
  4. OPDIVO [Concomitant]
     Active Substance: NIVOLUMAB
  5. YERVOY [Concomitant]
     Active Substance: IPILIMUMAB
  6. CARBOPLATIN. [Concomitant]
     Active Substance: CARBOPLATIN
  7. XELODA [Suspect]
     Active Substance: CAPECITABINE
     Indication: BREAST CANCER METASTATIC
     Route: 048
     Dates: start: 201601, end: 201703
  8. LYNPARZA [Concomitant]
     Active Substance: OLAPARIB
  9. DOXIL [Concomitant]
     Active Substance: DOXORUBICIN HYDROCHLORIDE
     Dates: start: 202102
  10. IBRANCE [Concomitant]
     Active Substance: PALBOCICLIB

REACTIONS (8)
  - Metastases to central nervous system [Not Recovered/Not Resolved]
  - Bone cancer [Recovered/Resolved]
  - Pain [Not Recovered/Not Resolved]
  - Emotional distress [Unknown]
  - Gait disturbance [Unknown]
  - Bone pain [Unknown]
  - Diabetes mellitus [Recovered/Resolved]
  - Intramedullary rod insertion [Not Recovered/Not Resolved]

NARRATIVE: CASE EVENT DATE: 2020
